FAERS Safety Report 12459003 (Version 1)
Quarter: 2016Q2

REPORT INFORMATION
  Report Type: Spontaneous
  Country: FR (occurrence: FR)
  Receive Date: 20160613
  Receipt Date: 20160613
  Transmission Date: 20160815
  Serious: Yes (Hospitalization, Other)
  Sender: FDA-Public Use
  Company Number: FR-ACCORD-041558

PATIENT
  Age: 71 Year
  Sex: Female
  Weight: 63 kg

DRUGS (4)
  1. GEMCITABINE/GEMCITABINE HYDROCHLORIDE [Suspect]
     Active Substance: GEMCITABINE\GEMCITABINE HYDROCHLORIDE
     Indication: OVARIAN CANCER STAGE IV
     Dosage: 1 IN 15 DAYS
     Route: 042
     Dates: start: 20160503
  2. PROZAC [Concomitant]
     Active Substance: FLUOXETINE HYDROCHLORIDE
  3. LYRICA [Concomitant]
     Active Substance: PREGABALIN
  4. OXALIPLATIN ACCORD [Suspect]
     Active Substance: OXALIPLATIN
     Indication: OVARIAN CANCER STAGE IV
     Dosage: 1 IN 15 DAYS
     Route: 042
     Dates: start: 20160503

REACTIONS (6)
  - Multiple organ dysfunction syndrome [Not Recovered/Not Resolved]
  - Neuropathy peripheral [Unknown]
  - Eosinophilic pneumonia acute [Not Recovered/Not Resolved]
  - Nausea [Unknown]
  - Asthenia [Unknown]
  - Off label use [Unknown]

NARRATIVE: CASE EVENT DATE: 20160506
